FAERS Safety Report 6167241-7 (Version None)
Quarter: 2009Q2

REPORT INFORMATION
  Report Type: 
  Country: None (occurrence: None)
  Receive Date: 20090424
  Receipt Date: 20090413
  Transmission Date: 20091009
  Serious: Yes (Other)
  Sender: FDA-Public Use
  Company Number: US-PFIZER INC-2008001997

PATIENT
  Sex: Female

DRUGS (9)
  1. CHANTIX [Suspect]
     Indication: SMOKING CESSATION THERAPY
     Dosage: UNK
     Dates: start: 20070119
  2. SPIRIVA [Suspect]
     Indication: CHRONIC OBSTRUCTIVE PULMONARY DISEASE
     Dosage: UNK DAILY
     Route: 055
     Dates: start: 20070119
  3. LASIX [Concomitant]
     Dosage: UNK
  4. GEODON [Concomitant]
     Dosage: UNK
  5. DIAZEPAM [Concomitant]
     Dosage: UNK
  6. ACETAMINOPHEN AND HYDROCODONE BITARTRATE [Concomitant]
     Dosage: UNK
  7. BETHANECHOL [Concomitant]
     Dosage: UNK
  8. GABAPENTIN [Concomitant]
     Dosage: UNK
  9. SERTRALINE HCL [Concomitant]
     Dosage: UNK

REACTIONS (16)
  - ANAL HAEMORRHAGE [None]
  - CHEST PAIN [None]
  - CHRONIC OBSTRUCTIVE PULMONARY DISEASE [None]
  - DRUG INEFFECTIVE [None]
  - EATING DISORDER [None]
  - FEELING ABNORMAL [None]
  - FLUID RETENTION [None]
  - GASTROOESOPHAGEAL REFLUX DISEASE [None]
  - MALAISE [None]
  - MOBILITY DECREASED [None]
  - NICOTINE DEPENDENCE [None]
  - REGURGITATION [None]
  - SLEEP DISORDER [None]
  - SWELLING [None]
  - THERAPEUTIC PRODUCT INEFFECTIVE [None]
  - WEIGHT INCREASED [None]
